FAERS Safety Report 14537423 (Version 3)
Quarter: 2018Q1

REPORT INFORMATION
  Report Type: Report from Study
  Country: US (occurrence: US)
  Receive Date: 20180215
  Receipt Date: 20180321
  Transmission Date: 20180509
  Serious: Yes (Hospitalization, Other)
  Sender: FDA-Public Use
  Company Number: US-ACTELION-A-NJ2017-163564

PATIENT
  Age: 69 Year
  Sex: Female
  Weight: 120.18 kg

DRUGS (4)
  1. OPSUMIT [Suspect]
     Active Substance: MACITENTAN
     Indication: PULMONARY HYPERTENSION
     Dosage: 10 MG, QD
     Route: 048
     Dates: start: 20171108
  2. LIPITOR [Suspect]
     Active Substance: ATORVASTATIN CALCIUM
     Indication: PRODUCT USED FOR UNKNOWN INDICATION
     Route: 065
  3. REMODULIN [Concomitant]
     Active Substance: TREPROSTINIL
     Dosage: 68 NG/KG, PER MIN
     Route: 042
     Dates: start: 20090806
  4. NORTRIPTYLINE [Suspect]
     Active Substance: NORTRIPTYLINE
     Indication: PRODUCT USED FOR UNKNOWN INDICATION
     Route: 065

REACTIONS (19)
  - Device related infection [Unknown]
  - Feeling of despair [Unknown]
  - Condition aggravated [Unknown]
  - Urinary incontinence [Unknown]
  - Device leakage [Unknown]
  - Depressed mood [Unknown]
  - Stress [Unknown]
  - Suicidal ideation [Unknown]
  - Decubitus ulcer [Unknown]
  - Amnesia [Not Recovered/Not Resolved]
  - Productive cough [Not Recovered/Not Resolved]
  - Loss of personal independence in daily activities [Unknown]
  - Cough [Not Recovered/Not Resolved]
  - Syncope [Unknown]
  - Anxiety [Not Recovered/Not Resolved]
  - Pneumonia [Unknown]
  - Bladder mass [Unknown]
  - Fatigue [Unknown]
  - Lower respiratory tract infection [Not Recovered/Not Resolved]

NARRATIVE: CASE EVENT DATE: 201711
